FAERS Safety Report 23451000 (Version 1)
Quarter: 2024Q1

REPORT INFORMATION
  Report Type: Spontaneous
  Country: US (occurrence: US)
  Receive Date: 20240129
  Receipt Date: 20240129
  Transmission Date: 20240409
  Serious: No
  Sender: FDA-Public Use
  Company Number: US-TAKEDA-2024TUS007291

PATIENT
  Age: 42 Year
  Sex: Female
  Weight: 95 kg

DRUGS (1)
  1. ENTYVIO [Suspect]
     Active Substance: VEDOLIZUMAB
     Indication: Colitis ulcerative
     Route: 042
     Dates: start: 20230822

REACTIONS (1)
  - Ligament sprain [Unknown]

NARRATIVE: CASE EVENT DATE: 20231229
